FAERS Safety Report 5274353-9 (Version None)
Quarter: 2007Q1

REPORT INFORMATION
  Report Type: 
  Country: None (occurrence: None)
  Receive Date: 20070323
  Receipt Date: 20070313
  Transmission Date: 20070707
  Serious: Yes (Disabling, Other)
  Sender: FDA-Public Use
  Company Number: GB-PFIZER INC-2005077978

PATIENT
  Sex: Female
  Weight: 77 kg

DRUGS (3)
  1. BEXTRA [Suspect]
     Indication: LIGAMENT RUPTURE
     Route: 048
     Dates: start: 20030101, end: 20040101
  2. LIPITOR [Suspect]
     Indication: BLOOD CHOLESTEROL INCREASED
     Route: 048
     Dates: start: 20030401, end: 20050620
  3. ACETAMINOPHEN [Concomitant]

REACTIONS (8)
  - ALOPECIA [None]
  - CHEST PAIN [None]
  - DYSPNOEA [None]
  - MUSCLE SPASMS [None]
  - PARAESTHESIA [None]
  - SENSATION OF FOREIGN BODY [None]
  - SENSATION OF HEAVINESS [None]
  - STOMACH DISCOMFORT [None]
